FAERS Safety Report 20799511 (Version 3)
Quarter: 2022Q3

REPORT INFORMATION
  Report Type: Report from Study
  Country: US (occurrence: US)
  Receive Date: 20220509
  Receipt Date: 20220907
  Transmission Date: 20221027
  Serious: Yes (Hospitalization, Other)
  Sender: FDA-Public Use
  Company Number: US-ACADIA PHARMACEUTICALS INC.-ACA-2022-PIM-001568

PATIENT
  Age: 68 Year
  Sex: Female

DRUGS (4)
  1. NUPLAZID [Suspect]
     Active Substance: PIMAVANSERIN TARTRATE
     Indication: Parkinson^s disease psychosis
     Dosage: 34 MILLIGRAM, QD
     Route: 048
  2. QUETIAPINE [Concomitant]
     Active Substance: QUETIAPINE
     Dosage: UNK
     Dates: start: 2018
  3. CARBIDOPA\LEVODOPA [Concomitant]
     Active Substance: CARBIDOPA\LEVODOPA
     Dosage: UNK
     Dates: start: 2018
  4. PRAMIPEXOLE [Concomitant]
     Active Substance: PRAMIPEXOLE
     Dosage: UNK
     Dates: start: 2018

REACTIONS (5)
  - Road traffic accident [Recovered/Resolved]
  - Tibia fracture [Recovering/Resolving]
  - Skin laceration [Recovered/Resolved]
  - Cellulitis [Recovered/Resolved]
  - Drug ineffective [Unknown]

NARRATIVE: CASE EVENT DATE: 20220411
